FAERS Safety Report 9667253 (Version 1)
Quarter: 2013Q4

REPORT INFORMATION
  Report Type: Spontaneous
  Country: IT (occurrence: None)
  Receive Date: 20131031
  Receipt Date: 20131031
  Transmission Date: 20140711
  Serious: Yes (Other)
  Sender: FDA-Public Use
  Company Number: IPC201310-000425

PATIENT
  Age: 37 Year
  Sex: Female

DRUGS (1)
  1. WARFARIN (WARFARIN) (WARFARIN) [Suspect]
     Indication: PULMONARY EMBOLISM

REACTIONS (3)
  - Inflammatory pseudotumour [None]
  - Antiphospholipid syndrome [None]
  - Hepatic lesion [None]
